FAERS Safety Report 21071756 (Version 1)
Quarter: 2022Q3

REPORT INFORMATION
  Report Type: Spontaneous
  Country: US (occurrence: None)
  Receive Date: 20220712
  Receipt Date: 20220712
  Transmission Date: 20221027
  Serious: No
  Sender: FDA-Public Use
  Company Number: None

PATIENT
  Age: 59 Year
  Sex: Female

DRUGS (1)
  1. DUPIXENT [Suspect]
     Active Substance: DUPILUMAB
     Indication: Dermatitis atopic
     Dosage: FREQUENCY : EVERY OTHER WEEK;?
     Route: 058
     Dates: start: 20220608

REACTIONS (6)
  - Headache [None]
  - Peripheral swelling [None]
  - Rash [None]
  - Pain in extremity [None]
  - Pain of skin [None]
  - Erythema [None]

NARRATIVE: CASE EVENT DATE: 20220622
